FAERS Safety Report 5706333-0 (Version None)
Quarter: 2008Q2

REPORT INFORMATION
  Report Type: 
  Country: None (occurrence: None)
  Receive Date: 20080409
  Receipt Date: 20071106
  Transmission Date: 20081010
  Serious: Yes (Hospitalization)
  Sender: FDA-Public Use
  Company Number: 160

PATIENT
  Sex: Female

DRUGS (3)
  1. FAZACLO ODT [Suspect]
     Indication: SCHIZOPHRENIA
     Dosage: 300 MG PO DAILY
     Route: 048
     Dates: start: 20070418, end: 20071004
  2. LITHIUM CARBONATE [Concomitant]
  3. BETA BLOCKER [Concomitant]

REACTIONS (1)
  - RHABDOMYOLYSIS [None]
